FAERS Safety Report 6283829-7 (Version None)
Quarter: 2009Q3

REPORT INFORMATION
  Report Type: 
  Country: None (occurrence: None)
  Receive Date: 20090724
  Receipt Date: 20090409
  Transmission Date: 20100115
  Serious: Yes (Other)
  Sender: FDA-Public Use
  Company Number: CA-ASTRAZENECA-2009SE00980

PATIENT
  Age: 67 Year
  Sex: Male

DRUGS (7)
  1. RENEDIL [Suspect]
     Indication: HYPERTENSION
     Route: 048
     Dates: start: 20090125
  2. FLUOROURACIL [Concomitant]
     Indication: HEPATIC NEOPLASM MALIGNANT
     Dosage: TWICE A WEEK SOLUTION NOS.
     Route: 042
     Dates: start: 20080901
  3. LEUCOVORIN CALCIUM [Concomitant]
     Indication: HEPATIC NEOPLASM MALIGNANT
     Dosage: TWICE A WEEK SOLUTION NOS.
     Route: 042
     Dates: start: 20080901
  4. IRINOTECAN HCL [Concomitant]
     Indication: HEPATIC NEOPLASM MALIGNANT
     Dosage: TWICE A WEEK SOLUTION NOS
     Route: 042
     Dates: start: 20080901
  5. WARFARIN SODIUM [Concomitant]
     Indication: ATRIAL FIBRILLATION
     Dosage: 1 MG ALTERNATING 2 MG EVERY DAY
     Route: 048
     Dates: start: 20071101
  6. PARIET [Concomitant]
     Indication: REGURGITATION
     Route: 048
     Dates: start: 20080501
  7. METOPROLOL SUCCINATE [Concomitant]
     Indication: HEART RATE INCREASED
     Route: 048
     Dates: start: 20071101

REACTIONS (1)
  - CARCINOEMBRYONIC ANTIGEN INCREASED [None]
